FAERS Safety Report 11831230 (Version 5)
Quarter: 2016Q3

REPORT INFORMATION
  Report Type: Report from Study
  Country: NG (occurrence: NG)
  Receive Date: 20151214
  Receipt Date: 20160701
  Transmission Date: 20161109
  Serious: Yes (Death, Life-Threatening, Hospitalization)
  Sender: FDA-Public Use
  Company Number: PHHY2015NG162618

PATIENT
  Sex: Male
  Weight: 71.5 kg

DRUGS (4)
  1. GLIVEC [Suspect]
     Active Substance: IMATINIB MESYLATE
     Dosage: 600 MG, UNK
     Route: 065
  2. HYDROXYUREA. [Suspect]
     Active Substance: HYDROXYUREA
     Indication: CHRONIC MYELOID LEUKAEMIA
     Route: 065
  3. GLIVEC [Suspect]
     Active Substance: IMATINIB MESYLATE
     Indication: CHRONIC MYELOID LEUKAEMIA
     Dosage: 400 MG, UNK
     Route: 065
     Dates: start: 20110324
  4. SPRYCEL [Suspect]
     Active Substance: DASATINIB
     Indication: CHRONIC MYELOID LEUKAEMIA
     Dosage: 150 MG, UNK
     Route: 048
     Dates: start: 20160204

REACTIONS (9)
  - Feeling abnormal [Unknown]
  - Dizziness [Unknown]
  - Haematocrit decreased [Unknown]
  - Pyrexia [Unknown]
  - Dehydration [Unknown]
  - Asthenia [Unknown]
  - Therapy non-responder [Unknown]
  - Blast crisis in myelogenous leukaemia [Fatal]
  - Drug resistance [Unknown]
